FAERS Safety Report 10231823 (Version 2)
Quarter: 2015Q2

REPORT INFORMATION
  Report Type: Spontaneous
  Country: US (occurrence: US)
  Receive Date: 20140612
  Receipt Date: 20150626
  Transmission Date: 20150821
  Serious: Yes (Other)
  Sender: FDA-Public Use
  Company Number: US-UCBSA-2014001152

PATIENT
  Age: 62 Year
  Sex: Female

DRUGS (1)
  1. CIMZIA [Suspect]
     Active Substance: CERTOLIZUMAB PEGOL
     Indication: CROHN^S DISEASE
     Dosage: 400 MG, EV 2 WEEKS(QOW); STRENGTH: 200 MG
     Route: 058
     Dates: start: 20140513, end: 20140604

REACTIONS (4)
  - Headache [Unknown]
  - Rash generalised [Unknown]
  - Skin exfoliation [Unknown]
  - Blister [Unknown]

NARRATIVE: CASE EVENT DATE: 20140604
